FAERS Safety Report 7530131-9 (Version None)
Quarter: 2011Q2

REPORT INFORMATION
  Report Type: 
  Country: None (occurrence: None)
  Receive Date: 20110606
  Receipt Date: 20110606
  Transmission Date: 20111010
  Serious: Yes (Other)
  Sender: FDA-Public Use
  Company Number: None

PATIENT
  Age: 56 Year
  Sex: Female
  Weight: 56.6996 kg

DRUGS (1)
  1. CHANTIX [Suspect]
     Indication: SMOKING CESSATION THERAPY
     Dosage: ONE TAB BID PO
     Route: 048

REACTIONS (7)
  - ASTHENIA [None]
  - DIZZINESS [None]
  - VISUAL IMPAIRMENT [None]
  - GAIT DISTURBANCE [None]
  - ARTHRALGIA [None]
  - PANIC ATTACK [None]
  - RASH [None]
